FAERS Safety Report 6654551-X (Version None)
Quarter: 2010Q1

REPORT INFORMATION
  Report Type: 
  Country: None (occurrence: None)
  Receive Date: 20100326
  Receipt Date: 20100315
  Transmission Date: 20100710
  Serious: Yes (Other)
  Sender: FDA-Public Use
  Company Number: US-PFIZER INC-2010014446

PATIENT
  Sex: Male
  Weight: 86.168 kg

DRUGS (6)
  1. DILANTIN [Suspect]
     Indication: EPILEPSY
     Dosage: 100 MG, 3X/DAY
     Route: 048
     Dates: start: 19730101
  2. DEPAKOTE [Suspect]
     Dosage: UNK
  3. TEGRETOL [Suspect]
     Dosage: UNK
  4. DAYQUIL ^FOX^ [Concomitant]
     Dosage: FREQUENCY: AS NEEDED,
  5. MINOCYCLINE [Concomitant]
     Dosage: UNK
  6. NYQUIL [Concomitant]
     Dosage: FREQUENCY: AS NEEDED,

REACTIONS (3)
  - ANTICONVULSANT DRUG LEVEL INCREASED [None]
  - CONVULSION [None]
  - ELECTROENCEPHALOGRAM ABNORMAL [None]
